FAERS Safety Report 25905560 (Version 1)
Quarter: 2025Q4

REPORT INFORMATION
  Report Type: Spontaneous
  Country: US (occurrence: US)
  Receive Date: 20251010
  Receipt Date: 20251010
  Transmission Date: 20260118
  Serious: No
  Sender: SANOFI AVENTIS
  Company Number: US-SANOFI-02677375

PATIENT
  Age: 60 Year
  Sex: Male

DRUGS (1)
  1. TOUJEO [Suspect]
     Active Substance: INSULIN GLARGINE
     Indication: Type 2 diabetes mellitus
     Dosage: 15 IU, BID, 15 UNITS EVERY MORNING AND ANOTHER 15 UNITS AT NIGHT

REACTIONS (1)
  - Inappropriate schedule of product administration [Unknown]
